FAERS Safety Report 16962543 (Version 2)
Quarter: 2019Q4

REPORT INFORMATION
  Report Type: Report from Study
  Country: US (occurrence: US)
  Receive Date: 20191025
  Receipt Date: 20191108
  Transmission Date: 20200122
  Serious: Yes (Hospitalization)
  Sender: FDA-Public Use
  Company Number: US-ADAMAS PHARMA, LLC-2019ADA02271

PATIENT
  Age: 77 Year
  Sex: Male

DRUGS (27)
  1. OXYMETAZOLINE [Concomitant]
     Active Substance: OXYMETAZOLINE
     Dosage: UNK, AS NEEDED
  2. CITALOPRAM [Concomitant]
     Active Substance: CITALOPRAM HYDROBROMIDE
     Dosage: 20 MG, 1X/DAY
  3. RIVASTIGMINE. [Concomitant]
     Active Substance: RIVASTIGMINE
     Dosage: 6 MG, 2X/DAY
  4. IPRATROPIUM BROMIDE. [Concomitant]
     Active Substance: IPRATROPIUM BROMIDE
  5. PSEUDOEPHEDRINE. [Concomitant]
     Active Substance: PSEUDOEPHEDRINE HYDROCHLORIDE
     Dosage: 120 UNK, AS NEEDED
     Route: 048
  6. PARCOPA [Concomitant]
     Active Substance: CARBIDOPA\LEVODOPA
     Dosage: 1 TABLETS, AS NEEDED
     Route: 048
  7. SUDAFED [Concomitant]
     Active Substance: PSEUDOEPHEDRINE HYDROCHLORIDE
     Dosage: 120 MG, AS NEEDED
  8. TIMOPTIC [Concomitant]
     Active Substance: TIMOLOL MALEATE
     Dosage: Y1 GTT, 2X/DAY
  9. XADAGO [Concomitant]
     Active Substance: SAFINAMIDE MESYLATE
     Dosage: UNK MG
  10. FLUTICASONE. [Concomitant]
     Active Substance: FLUTICASONE
  11. ZYRTEC [Concomitant]
     Active Substance: CETIRIZINE HYDROCHLORIDE
     Route: 048
  12. XALATAN [Concomitant]
     Active Substance: LATANOPROST
     Dosage: Y1 GTT, 1X/DAY
  13. GOCOVRI [Suspect]
     Active Substance: AMANTADINE
     Dosage: 137 MG, 1X/DAY, AT BEDTIME
     Route: 048
     Dates: start: 20191008
  14. FISH OIL [Concomitant]
     Active Substance: FISH OIL
     Dosage: UNK MG
  15. DOCUSATE SODIUM. [Concomitant]
     Active Substance: DOCUSATE SODIUM
     Dosage: 200 MG, 1X/DAY
  16. FLUOCINONIDE. [Concomitant]
     Active Substance: FLUOCINONIDE
     Dosage: UNK, AS NEEDED
  17. PREVIDENT [Concomitant]
     Active Substance: SODIUM FLUORIDE
     Dosage: Y1 DOSAGE UNITS, 1X/DAY
     Route: 048
  18. MULTIVITAMIN (SENIOR FORMULA) [Concomitant]
     Dosage: UNK UNK, 1X/DAY
  19. SERTRALINE [Concomitant]
     Active Substance: SERTRALINE HYDROCHLORIDE
  20. CHILDRENS CHEWABLE ASPIRIN [Concomitant]
     Active Substance: ASPIRIN
     Dosage: 81 MG, 1X/DAY
     Route: 048
  21. ZANTAC [Concomitant]
     Active Substance: RANITIDINE HYDROCHLORIDE
     Dosage: 150 MG, 2X/DAY
     Route: 048
  22. GOCOVRI [Suspect]
     Active Substance: AMANTADINE
     Indication: DYSKINESIA
     Dosage: 137 MG, 1X/DAY, AT BEDTIME
     Route: 048
     Dates: start: 20180719, end: 20190926
  23. RYTARY [Concomitant]
     Active Substance: CARBIDOPA\LEVODOPA
     Dosage: 2 TABLETS, 4X/DAY
  24. MELATONIN [Concomitant]
     Active Substance: MELATONIN
     Dosage: 5 MG, 1X/DAY
     Route: 048
  25. VITAMIN D3 [Concomitant]
     Active Substance: CHOLECALCIFEROL
     Dosage: UNK
  26. SINEMET [Concomitant]
     Active Substance: CARBIDOPA\LEVODOPA
     Dosage: UNK, AS NEEDED AT NIGHT
  27. XADAGO [Concomitant]
     Active Substance: SAFINAMIDE MESYLATE
     Dosage: 100 MG, 1X/DAY
     Route: 048

REACTIONS (12)
  - Confusional state [Recovered/Resolved]
  - Seizure like phenomena [Recovered/Resolved]
  - Product dose omission [Recovered/Resolved]
  - Depression [Unknown]
  - Asthenia [Recovering/Resolving]
  - Balance disorder [Recovering/Resolving]
  - Aphasia [Recovering/Resolving]
  - Feeling abnormal [Not Recovered/Not Resolved]
  - Fall [Unknown]
  - Amnesia [Recovered/Resolved]
  - Musculoskeletal pain [None]
  - Hypersomnia [Unknown]

NARRATIVE: CASE EVENT DATE: 201909
